FAERS Safety Report 19499827 (Version 1)
Quarter: 2021Q3

REPORT INFORMATION
  Report Type: Report from Study
  Country: FR (occurrence: FR)
  Receive Date: 20210706
  Receipt Date: 20210706
  Transmission Date: 20211014
  Serious: Yes (Hospitalization, Other)
  Sender: FDA-Public Use
  Company Number: FR-TAKEDA-FR202024344

PATIENT
  Age: 62 Year
  Sex: Female

DRUGS (40)
  1. TEDUGLUTIDE [Suspect]
     Active Substance: TEDUGLUTIDE
     Dosage: 2.8 MILLIGRAM (TED DAILY DOSES 0.0500 MG/KG)
     Route: 065
     Dates: start: 20160825, end: 20160908
  2. TEDUGLUTIDE [Suspect]
     Active Substance: TEDUGLUTIDE
     Dosage: 2.6 MILLIGRAM (TRD DAILY DOSES 0.0500 MG/KG)
     Route: 065
     Dates: start: 20161108, end: 20161206
  3. TEDUGLUTIDE [Suspect]
     Active Substance: TEDUGLUTIDE
     Dosage: 2.6 MILLIGRAM (TED DAILY DOSES 0.0500 MG/KG)
     Route: 065
     Dates: start: 20170303, end: 20170411
  4. TEDUGLUTIDE [Suspect]
     Active Substance: TEDUGLUTIDE
     Dosage: 2.6 MILLIGRAM (TED DAILY DOSES 0.0500 MG/KG)
     Route: 065
     Dates: start: 20170303, end: 20170411
  5. TEDUGLUTIDE [Suspect]
     Active Substance: TEDUGLUTIDE
     Dosage: 2.4 MILLIGRAM (TED DAILY DOSES 0.0500 MG/KG)
     Route: 065
     Dates: start: 20181130
  6. TEDUGLUTIDE [Suspect]
     Active Substance: TEDUGLUTIDE
     Dosage: 2.6 MILLIGRAM (TED DAILY DOSES 0.0500 MG/KG)
     Route: 065
     Dates: start: 20160909, end: 20160914
  7. TEDUGLUTIDE [Suspect]
     Active Substance: TEDUGLUTIDE
     Dosage: 2.8 MILLIGRAM (TED DAILY DOSES 0.0500 MG/KG)
     Route: 065
     Dates: start: 20160915, end: 20161107
  8. TEDUGLUTIDE [Suspect]
     Active Substance: TEDUGLUTIDE
     Indication: SHORT-BOWEL SYNDROME
     Dosage: 3.0 MILLIGRAM (TED DAILY DOSES 0.0500 MG/KG)
     Route: 065
     Dates: start: 20160404, end: 20160824
  9. TEDUGLUTIDE [Suspect]
     Active Substance: TEDUGLUTIDE
     Dosage: 2.8 MILLIGRAM (TED DAILY DOSES 0.0500 MG/KG)
     Route: 065
     Dates: start: 20160915, end: 20161107
  10. TEDUGLUTIDE [Suspect]
     Active Substance: TEDUGLUTIDE
     Dosage: 2.6 MILLIGRAM (TED DAILY DOSES 0.0500 MG/KG)
     Route: 065
     Dates: start: 20170303, end: 20170411
  11. TEDUGLUTIDE [Suspect]
     Active Substance: TEDUGLUTIDE
     Dosage: 2.4 MILLIGRAM (TED DAILY DOSES 0.0500 MG/KG)
     Route: 065
     Dates: start: 20181130
  12. TEDUGLUTIDE [Suspect]
     Active Substance: TEDUGLUTIDE
     Indication: SHORT-BOWEL SYNDROME
     Dosage: 3.0 MILLIGRAM (TED DAILY DOSES 0.0500 MG/KG)
     Route: 065
     Dates: start: 20160404, end: 20160824
  13. TEDUGLUTIDE [Suspect]
     Active Substance: TEDUGLUTIDE
     Dosage: 2.8 MILLIGRAM (TED DAILY DOSES 0.0500 MG/KG)
     Route: 065
     Dates: start: 20160825, end: 20160908
  14. TEDUGLUTIDE [Suspect]
     Active Substance: TEDUGLUTIDE
     Dosage: 2.6 MILLIGRAM (TRD DAILY DOSES 0.0500 MG/KG)
     Route: 065
     Dates: start: 20161108, end: 20161206
  15. TEDUGLUTIDE [Suspect]
     Active Substance: TEDUGLUTIDE
     Dosage: 2.8 MILLIGRAM (TED DAILY DOSES 0.0500 MG/KG)
     Route: 065
     Dates: start: 20170214, end: 20170220
  16. WARFARINE [Concomitant]
     Active Substance: WARFARIN
     Indication: THROMBOSIS PROPHYLAXIS
     Dosage: 1.50 UNK
     Route: 048
     Dates: start: 20191125
  17. TEDUGLUTIDE [Suspect]
     Active Substance: TEDUGLUTIDE
     Indication: SHORT-BOWEL SYNDROME
     Dosage: 3.0 MILLIGRAM (TED DAILY DOSES 0.0500 MG/KG)
     Route: 065
     Dates: start: 20160404, end: 20160824
  18. TEDUGLUTIDE [Suspect]
     Active Substance: TEDUGLUTIDE
     Dosage: 2.6 MILLIGRAM (TED DAILY DOSES 0.0500 MG/KG)
     Route: 065
     Dates: start: 20160909, end: 20160914
  19. TEDUGLUTIDE [Suspect]
     Active Substance: TEDUGLUTIDE
     Dosage: 2.6 MILLIGRAM (TRD DAILY DOSES 0.0500 MG/KG)
     Route: 065
     Dates: start: 20161108, end: 20161206
  20. TEDUGLUTIDE [Suspect]
     Active Substance: TEDUGLUTIDE
     Dosage: 2.6 MILLIGRAM (TED DAILY DOSES 0.0500 MG/KG)
     Route: 065
     Dates: start: 20170303, end: 20170411
  21. TEDUGLUTIDE [Suspect]
     Active Substance: TEDUGLUTIDE
     Dosage: 2.8 MILLIGRAM (TED DAILY DOSES 0.0500 MG/KG)
     Route: 065
     Dates: start: 20170412, end: 20181129
  22. TEDUGLUTIDE [Suspect]
     Active Substance: TEDUGLUTIDE
     Dosage: 2.4 MILLIGRAM (TED DAILY DOSES 0.0500 MG/KG)
     Route: 065
     Dates: start: 20181130
  23. CALCIUM CARBONATE. [Concomitant]
     Active Substance: CALCIUM CARBONATE
     Indication: SHORT-BOWEL SYNDROME
     Dosage: 500 MILLIGRAM, QD
     Route: 048
     Dates: start: 20200214
  24. TEDUGLUTIDE [Suspect]
     Active Substance: TEDUGLUTIDE
     Indication: SHORT-BOWEL SYNDROME
     Dosage: 3.0 MILLIGRAM (TED DAILY DOSES 0.0500 MG/KG)
     Route: 065
     Dates: start: 20160404, end: 20160824
  25. TEDUGLUTIDE [Suspect]
     Active Substance: TEDUGLUTIDE
     Dosage: 2.8 MILLIGRAM (TED DAILY DOSES 0.0500 MG/KG)
     Route: 065
     Dates: start: 20160825, end: 20160908
  26. TEDUGLUTIDE [Suspect]
     Active Substance: TEDUGLUTIDE
     Dosage: 2.8 MILLIGRAM (TED DAILY DOSES 0.0500 MG/KG)
     Route: 065
     Dates: start: 20160825, end: 20160908
  27. TEDUGLUTIDE [Suspect]
     Active Substance: TEDUGLUTIDE
     Dosage: 2.6 MILLIGRAM (TED DAILY DOSES 0.0500 MG/KG)
     Route: 065
     Dates: start: 20160909, end: 20160914
  28. TEDUGLUTIDE [Suspect]
     Active Substance: TEDUGLUTIDE
     Dosage: 2.4 MILLIGRAM (TED DAILY DOSES 0.0500 MG/KG)
     Route: 065
     Dates: start: 20181130
  29. COLECALCIFEROL [Concomitant]
     Active Substance: CHOLECALCIFEROL
     Indication: SHORT-BOWEL SYNDROME
     Dosage: 100000 INTERNATIONAL UNIT, MONTHLY
     Route: 048
     Dates: start: 20200214
  30. TEDUGLUTIDE [Suspect]
     Active Substance: TEDUGLUTIDE
     Dosage: 2.6 MILLIGRAM (TED DAILY DOSES 0.0500 MG/KG)
     Route: 065
     Dates: start: 20160909, end: 20160914
  31. TEDUGLUTIDE [Suspect]
     Active Substance: TEDUGLUTIDE
     Dosage: 2.8 MILLIGRAM (TED DAILY DOSES 0.0500 MG/KG)
     Route: 065
     Dates: start: 20160915, end: 20161107
  32. TEDUGLUTIDE [Suspect]
     Active Substance: TEDUGLUTIDE
     Dosage: 2.6 MILLIGRAM (TRD DAILY DOSES 0.0500 MG/KG)
     Route: 065
     Dates: start: 20161108, end: 20161206
  33. TEDUGLUTIDE [Suspect]
     Active Substance: TEDUGLUTIDE
     Dosage: 2.8 MILLIGRAM (TED DAILY DOSES 0.0500 MG/KG)
     Route: 065
     Dates: start: 20170214, end: 20170220
  34. TEDUGLUTIDE [Suspect]
     Active Substance: TEDUGLUTIDE
     Dosage: 2.8 MILLIGRAM (TED DAILY DOSES 0.0500 MG/KG)
     Route: 065
     Dates: start: 20170412, end: 20181129
  35. TEDUGLUTIDE [Suspect]
     Active Substance: TEDUGLUTIDE
     Dosage: 2.8 MILLIGRAM (TED DAILY DOSES 0.0500 MG/KG)
     Route: 065
     Dates: start: 20160915, end: 20161107
  36. TEDUGLUTIDE [Suspect]
     Active Substance: TEDUGLUTIDE
     Dosage: 2.8 MILLIGRAM (TED DAILY DOSES 0.0500 MG/KG)
     Route: 065
     Dates: start: 20170214, end: 20170220
  37. TEDUGLUTIDE [Suspect]
     Active Substance: TEDUGLUTIDE
     Dosage: 2.8 MILLIGRAM (TED DAILY DOSES 0.0500 MG/KG)
     Route: 065
     Dates: start: 20170214, end: 20170220
  38. TEDUGLUTIDE [Suspect]
     Active Substance: TEDUGLUTIDE
     Dosage: 2.8 MILLIGRAM (TED DAILY DOSES 0.0500 MG/KG)
     Route: 065
     Dates: start: 20170412, end: 20181129
  39. TEDUGLUTIDE [Suspect]
     Active Substance: TEDUGLUTIDE
     Dosage: 2.8 MILLIGRAM (TED DAILY DOSES 0.0500 MG/KG)
     Route: 065
     Dates: start: 20170412, end: 20181129
  40. MAGNESIUM SULFATE. [Concomitant]
     Active Substance: MAGNESIUM SULFATE
     Indication: SHORT-BOWEL SYNDROME
     Dosage: 15000 MILLIGRAM
     Route: 042
     Dates: start: 201911

REACTIONS (1)
  - Device related infection [Recovered/Resolved]

NARRATIVE: CASE EVENT DATE: 20170708
